FAERS Safety Report 5312436-5 (Version None)
Quarter: 2007Q2

REPORT INFORMATION
  Report Type: 
  Country: None (occurrence: None)
  Receive Date: 20070430
  Receipt Date: 20070423
  Transmission Date: 20071010
  Serious: Yes (Hospitalization)
  Sender: FDA-Public Use
  Company Number: CA-MERCK-0704CAN00108

PATIENT

DRUGS (1)
  1. HYZAAR [Suspect]
     Route: 048

REACTIONS (1)
  - RHABDOMYOLYSIS [None]
